FAERS Safety Report 11237666 (Version 7)
Quarter: 2017Q4

REPORT INFORMATION
  Report Type: Report from Study
  Country: ES (occurrence: ES)
  Receive Date: 20150703
  Receipt Date: 20171211
  Transmission Date: 20180320
  Serious: Yes (Death, Hospitalization, Other)
  Sender: FDA-Public Use
  Company Number: ES-JNJFOC-20150620536

PATIENT
  Age: 79 Year
  Sex: Male
  Weight: 66 kg

DRUGS (4)
  1. PREDNISONE. [Concomitant]
     Active Substance: PREDNISONE
     Route: 048
     Dates: start: 20150527, end: 20150625
  2. OMEPRAZOLE. [Concomitant]
     Active Substance: OMEPRAZOLE
     Route: 048
     Dates: start: 20141127, end: 20150625
  3. IBRUTINIB [Suspect]
     Active Substance: IBRUTINIB
     Indication: MANTLE CELL LYMPHOMA
     Route: 048
     Dates: start: 20150424
  4. IBRUTINIB [Suspect]
     Active Substance: IBRUTINIB
     Indication: MANTLE CELL LYMPHOMA
     Route: 048
     Dates: end: 20150625

REACTIONS (3)
  - Mantle cell lymphoma [Fatal]
  - Atrial fibrillation [Recovered/Resolved]
  - Transaminases increased [Recovered/Resolved]

NARRATIVE: CASE EVENT DATE: 2015
